FAERS Safety Report 21350878 (Version 1)
Quarter: 2022Q3

REPORT INFORMATION
  Report Type: Report from Study
  Country: US (occurrence: US)
  Receive Date: 20220919
  Receipt Date: 20220919
  Transmission Date: 20221027
  Serious: Yes (Other)
  Sender: FDA-Public Use
  Company Number: US-MYLANLABS-2022M1094325

PATIENT
  Sex: Female
  Weight: 65.77 kg

DRUGS (1)
  1. GLATIRAMER ACETATE [Suspect]
     Active Substance: GLATIRAMER ACETATE
     Indication: Multiple sclerosis
     Dosage: 40 MILLIGRAM, 3XW
     Route: 058

REACTIONS (8)
  - Eye haemorrhage [Recovering/Resolving]
  - Ear pruritus [Recovering/Resolving]
  - Depression [Recovering/Resolving]
  - Renal pain [Recovering/Resolving]
  - Fatigue [Recovering/Resolving]
  - Rash macular [Recovering/Resolving]
  - Contusion [Recovering/Resolving]
  - Eye pruritus [Recovering/Resolving]
